FAERS Safety Report 14717543 (Version 5)
Quarter: 2019Q4

REPORT INFORMATION
  Report Type: Report from Study
  Country: US (occurrence: US)
  Receive Date: 20180404
  Receipt Date: 20191028
  Transmission Date: 20200122
  Serious: No
  Sender: FDA-Public Use
  Company Number: US-SA-2018SA011347

PATIENT
  Age: 60 Year
  Sex: Male

DRUGS (2)
  1. DUPILUMAB [Suspect]
     Active Substance: DUPILUMAB
     Indication: DERMATITIS ATOPIC
     Dosage: 300 MG, QOW
     Route: 058
     Dates: start: 20171121
  2. TRIAMCINOLONE ACETONIDE. [Concomitant]
     Active Substance: TRIAMCINOLONE ACETONIDE
     Indication: ECZEMA
     Dosage: UNK UNK,UNK
     Route: 065
     Dates: end: 201711

REACTIONS (11)
  - Dry eye [Unknown]
  - Epistaxis [Unknown]
  - Sinus disorder [Unknown]
  - Product dose omission [Unknown]
  - Condition aggravated [Not Recovered/Not Resolved]
  - Nasal congestion [Unknown]
  - Rash macular [Recovered/Resolved]
  - Lacrimation increased [Not Recovered/Not Resolved]
  - Sneezing [Not Recovered/Not Resolved]
  - Rhinorrhoea [Not Recovered/Not Resolved]
  - Hypersensitivity [Not Recovered/Not Resolved]

NARRATIVE: CASE EVENT DATE: 2017
